FAERS Safety Report 9734952 (Version 6)
Quarter: 2014Q1

REPORT INFORMATION
  Report Type: Spontaneous
  Country: US (occurrence: US)
  Receive Date: 20131206
  Receipt Date: 20140324
  Transmission Date: 20141002
  Serious: Yes (Hospitalization)
  Sender: FDA-Public Use
  Company Number: US-PFIZER INC-2013344898

PATIENT
  Age: 73 Year
  Sex: Female
  Weight: 78.01 kg

DRUGS (15)
  1. SUTENT [Suspect]
     Indication: CLEAR CELL RENAL CELL CARCINOMA
     Dosage: 50 MG, 1X/DAY (QD) (12 CYCLES X 42 DAYS)
     Route: 048
     Dates: start: 20131122, end: 20131212
  2. MS CONTIN [Suspect]
     Indication: PAIN
     Dosage: 15 MG, 3X/DAY
     Route: 048
     Dates: start: 20131105
  3. MS CONTIN [Suspect]
     Dosage: 15 MG, 2X/DAY
     Dates: start: 20131119
  4. ROXANOL [Suspect]
     Indication: PAIN
     Dosage: 20 MG/ML, 2.5-5MG Q 2H PRN
     Route: 048
     Dates: start: 20131105
  5. METOPROLOL [Concomitant]
     Dosage: UNK
  6. LEVOTHYROXINE [Concomitant]
     Dosage: 125 MG, 1X/DAY (QD)
  7. CALCITRIOL [Concomitant]
     Dosage: UNK
  8. SENOKOT [Concomitant]
     Indication: CONSTIPATION
     Dosage: UNK, AS NEEDED
     Dates: start: 20131127
  9. MIRALAX [Concomitant]
     Dosage: UNK
  10. COMPAZINE [Concomitant]
     Dosage: UNK
  11. ZOLOFT [Concomitant]
     Dosage: UNK
  12. TRAZODONE [Concomitant]
     Dosage: UNK
  13. CALCIUM [Concomitant]
     Dosage: UNK
  14. OMEPRAZOLE [Concomitant]
     Dosage: UNK
     Dates: start: 20131203
  15. PROCHLORPERAZINE [Concomitant]
     Indication: NAUSEA
     Dosage: UNK, AS NEEDED
     Dates: start: 20131203

REACTIONS (11)
  - Dehydration [Recovered/Resolved]
  - Hypokalaemia [Recovered/Resolved]
  - Fall [Unknown]
  - Glossodynia [Recovered/Resolved]
  - Diarrhoea [Recovering/Resolving]
  - Constipation [Unknown]
  - Paranasal sinus hypersecretion [Unknown]
  - Dysgeusia [Unknown]
  - Hypersomnia [Unknown]
  - Faecal incontinence [Unknown]
  - Oral pain [Unknown]
